FAERS Safety Report 4870881-6 (Version None)
Quarter: 2005Q4

REPORT INFORMATION
  Report Type: 
  Country: None (occurrence: None)
  Receive Date: 20051229
  Receipt Date: 20051221
  Transmission Date: 20060501
  Serious: Yes (Hospitalization)
  Sender: FDA-Public Use
  Company Number: 2005-12-1069

PATIENT
  Age: 63 Year
  Sex: Female

DRUGS (4)
  1. BETAMETHASONE [Suspect]
     Indication: POLYMYOSITIS
     Dosage: 2 MG BID ORAL
     Route: 048
     Dates: start: 20051102, end: 20051105
  2. CORTANCYL TABLETS [Suspect]
     Dosage: 60 MG QD ORAL
     Route: 048
     Dates: start: 20051111
  3. FLUDEX [Concomitant]
  4. ZOFENOPRIL [Concomitant]

REACTIONS (3)
  - INTESTINAL PERFORATION [None]
  - PNEUMOPERITONEUM [None]
  - SIGMOIDITIS [None]
